FAERS Safety Report 22656933 (Version 14)
Quarter: 2024Q1

REPORT INFORMATION
  Report Type: Report from Study
  Country: US (occurrence: US)
  Receive Date: 20230630
  Receipt Date: 20240209
  Transmission Date: 20240409
  Serious: Yes (Hospitalization, Disabling, Other)
  Sender: FDA-Public Use
  Company Number: US-002147023-NVSC2023US148878

PATIENT
  Age: 53 Year
  Sex: Female

DRUGS (17)
  1. KESIMPTA [Suspect]
     Active Substance: OFATUMUMAB
     Indication: Multiple sclerosis
     Dosage: 20 MG, QMO
     Route: 058
     Dates: start: 20230401
  2. KESIMPTA [Suspect]
     Active Substance: OFATUMUMAB
     Dosage: 20 MG, QMO
     Route: 058
     Dates: start: 20230405
  3. KESIMPTA [Suspect]
     Active Substance: OFATUMUMAB
     Dosage: 20 MG, QMO (INJECT 1 PEN (20MG) MONTHLY STARTING AT WEEK 4 AS DIRECTED)
     Route: 058
     Dates: start: 20230505
  4. KESIMPTA [Suspect]
     Active Substance: OFATUMUMAB
     Dosage: 20 MG, QMO (INJECT 1 PEN (20MG) MONTHLY STARTING AT WEEK 4 AS DIRECTED)
     Route: 058
  5. KESIMPTA [Suspect]
     Active Substance: OFATUMUMAB
     Dosage: 20 MG, QMO
     Route: 030
  6. KESIMPTA [Suspect]
     Active Substance: OFATUMUMAB
     Dosage: 20 MG, QMO (INJECT 1 PEN STARTING AT WEEK 4 AS DIRECTED)
     Route: 058
  7. KESIMPTA [Suspect]
     Active Substance: OFATUMUMAB
     Dosage: 1 DOSAGE FORM, QMO (INJECT 20MG (1 INJECTOR) SUBCUTANEOUSLY MONTHLY STARTING AT WEEK 4 AS DIRECTED)
     Route: 058
  8. KESIMPTA [Suspect]
     Active Substance: OFATUMUMAB
     Dosage: 20 MG, QMO (INJECT 1 PEN STARTING AT WEEK 4 AS DIRECTED)
     Route: 058
  9. CLONAZEPAM [Concomitant]
     Active Substance: CLONAZEPAM
     Indication: Product used for unknown indication
     Dosage: UNK
     Route: 065
  10. PRAMIPEXOLE DIHYDROCHLORIDE [Concomitant]
     Active Substance: PRAMIPEXOLE DIHYDROCHLORIDE
     Indication: Product used for unknown indication
     Dosage: UNK
     Route: 065
  11. TRAMADOL HCL [Concomitant]
     Active Substance: TRAMADOL HYDROCHLORIDE
     Indication: Product used for unknown indication
     Dosage: UNK
     Route: 065
  12. GABAPENTIN [Concomitant]
     Active Substance: GABAPENTIN
     Indication: Product used for unknown indication
     Dosage: UNK
     Route: 065
  13. ACETAMINOPHEN\HYDROCODONE [Concomitant]
     Active Substance: ACETAMINOPHEN\HYDROCODONE
     Indication: Product used for unknown indication
     Dosage: UNK
     Route: 065
  14. DALFAMPRIDINE [Concomitant]
     Active Substance: DALFAMPRIDINE
     Indication: Product used for unknown indication
     Dosage: UNK
     Route: 065
  15. ESTRADIOL [Concomitant]
     Active Substance: ESTRADIOL
     Indication: Product used for unknown indication
     Dosage: UNK
     Route: 065
  16. DOCUSATE SODIUM [Concomitant]
     Active Substance: DOCUSATE SODIUM
     Indication: Product used for unknown indication
     Dosage: UNK
     Route: 065
  17. METHOCARBAMOL [Concomitant]
     Active Substance: METHOCARBAMOL
     Indication: Product used for unknown indication
     Dosage: UNK
     Route: 065

REACTIONS (12)
  - Spinal disorder [Unknown]
  - Arthralgia [Unknown]
  - Gait disturbance [Unknown]
  - Restless legs syndrome [Unknown]
  - Fungal infection [Unknown]
  - Retinitis pigmentosa [Unknown]
  - Gingival bleeding [Unknown]
  - Bursitis [Unknown]
  - Back pain [Unknown]
  - Haemoptysis [Not Recovered/Not Resolved]
  - Neuralgia [Not Recovered/Not Resolved]
  - Malaise [Unknown]

NARRATIVE: CASE EVENT DATE: 20230801
